FAERS Safety Report 15740868 (Version 2)
Quarter: 2018Q4

REPORT INFORMATION
  Report Type: Report from Study
  Country: US (occurrence: US)
  Receive Date: 20181219
  Receipt Date: 20181221
  Transmission Date: 20190205
  Serious: Yes (Hospitalization, Other)
  Sender: FDA-Public Use
  Company Number: US-GILEAD-2018-0380909

PATIENT
  Age: 77 Year
  Sex: Male

DRUGS (2)
  1. RANOLAZINE. [Suspect]
     Active Substance: RANOLAZINE
     Indication: ANGINA PECTORIS
     Dosage: 500 MG, BID
     Route: 048
  2. RANOLAZINE. [Suspect]
     Active Substance: RANOLAZINE
     Dosage: 1000 MG, BID
     Route: 048

REACTIONS (6)
  - Myocardial infarction [Unknown]
  - Dysphagia [Not Recovered/Not Resolved]
  - Pleural effusion [Recovering/Resolving]
  - Wrong technique in product usage process [Not Recovered/Not Resolved]
  - Dementia [Not Recovered/Not Resolved]
  - Product physical issue [Not Recovered/Not Resolved]

NARRATIVE: CASE EVENT DATE: 20151210
